FAERS Safety Report 21129698 (Version 1)
Quarter: 2022Q3

REPORT INFORMATION
  Report Type: Spontaneous
  Country: US (occurrence: US)
  Receive Date: 20220726
  Receipt Date: 20220726
  Transmission Date: 20221026
  Serious: No
  Sender: FDA-Public Use
  Company Number: US-TEVA-2022-US-2054756

PATIENT

DRUGS (3)
  1. COPAXONE [Suspect]
     Active Substance: GLATIRAMER ACETATE
     Indication: Product used for unknown indication
     Dosage: FORM STRENGTH AND DOSE: UNKNOWN
     Route: 065
  2. VUMERITY [Suspect]
     Active Substance: DIROXIMEL FUMARATE
     Indication: Product used for unknown indication
     Route: 065
  3. AUBAGIO [Suspect]
     Active Substance: TERIFLUNOMIDE
     Indication: Product used for unknown indication
     Route: 065

REACTIONS (3)
  - Injection site urticaria [Unknown]
  - Flushing [Unknown]
  - Migraine [Unknown]
